FAERS Safety Report 21545469 (Version 1)
Quarter: 2022Q4

REPORT INFORMATION
  Report Type: Spontaneous
  Country: CH (occurrence: None)
  Receive Date: 20221103
  Receipt Date: 20221103
  Transmission Date: 20230113
  Serious: Yes (Other)
  Sender: FDA-Public Use
  Company Number: CH-ROCHE-3210435

PATIENT
  Sex: Male

DRUGS (18)
  1. RITUXIMAB [Suspect]
     Active Substance: RITUXIMAB
     Indication: Burkitt^s lymphoma
     Dosage: 1ST LINE SYSTEMIC TREATMENT
     Route: 065
     Dates: start: 20220210, end: 20220620
  2. RITUXIMAB [Suspect]
     Active Substance: RITUXIMAB
     Dosage: 2ND LINE SYSTEMIC TREATMENT
     Route: 065
     Dates: start: 20220823, end: 20220830
  3. RITUXIMAB [Suspect]
     Active Substance: RITUXIMAB
     Dosage: 3RD LINE SYSTEMIC TREATMENT
     Route: 065
     Dates: start: 20220912, end: 20220920
  4. CYCLOPHOSPHAMIDE [Suspect]
     Active Substance: CYCLOPHOSPHAMIDE
     Indication: Burkitt^s lymphoma
     Dosage: 1ST LINE SYSTEMIC TREATMENT
     Route: 065
     Dates: start: 20220210, end: 20220620
  5. CYCLOPHOSPHAMIDE [Suspect]
     Active Substance: CYCLOPHOSPHAMIDE
     Dosage: 3RD LINE SYSTEMIC TREATMENT
     Route: 065
     Dates: start: 20220912, end: 20220920
  6. DOXORUBICIN [Suspect]
     Active Substance: DOXORUBICIN
     Indication: Burkitt^s lymphoma
     Dosage: 1ST LINE SYSTEMIC TREATMENT
     Route: 065
     Dates: start: 20220210, end: 20220620
  7. DOXORUBICIN [Suspect]
     Active Substance: DOXORUBICIN
     Dosage: 3RD LINE SYSTEMIC TREATMENT
     Route: 065
     Dates: start: 20220912, end: 20220920
  8. VINCRISTINE [Suspect]
     Active Substance: VINCRISTINE
     Indication: Burkitt^s lymphoma
     Dosage: 1ST LINE SYSTEMIC TREATMENT
     Route: 065
     Dates: start: 20220210, end: 20220620
  9. VINCRISTINE [Suspect]
     Active Substance: VINCRISTINE
     Dosage: 3RD LINE SYSTEMIC TREATMENT
     Route: 065
     Dates: start: 20220912, end: 20220920
  10. METHOTREXATE [Suspect]
     Active Substance: METHOTREXATE
     Indication: Burkitt^s lymphoma
     Dosage: 1ST LINE SYSTEMIC TREATMENT
     Route: 065
     Dates: start: 20220210, end: 20220620
  11. CYTARABINE [Suspect]
     Active Substance: CYTARABINE
     Indication: Burkitt^s lymphoma
     Dosage: 1ST LINE SYSTEMIC TREATMENT
     Route: 065
     Dates: start: 20220210, end: 20220620
  12. IFOSFAMIDE [Suspect]
     Active Substance: IFOSFAMIDE
     Indication: Burkitt^s lymphoma
     Dosage: 1ST LINE SYSTEMIC TREATMENT
     Route: 065
     Dates: start: 20220210, end: 20220620
  13. IFOSFAMIDE [Suspect]
     Active Substance: IFOSFAMIDE
     Dosage: 2ND LINE SYSTEMIC TREATMENT
     Route: 065
     Dates: start: 20220823, end: 20220830
  14. ETOPOSIDE [Suspect]
     Active Substance: ETOPOSIDE
     Indication: Burkitt^s lymphoma
     Dosage: 1ST LINE SYSTEMIC TREATMENT
     Route: 065
     Dates: start: 20220210, end: 20220620
  15. ETOPOSIDE [Suspect]
     Active Substance: ETOPOSIDE
     Dosage: 2ND LINE SYSTEMIC TREATMENT
     Route: 065
     Dates: start: 20220823, end: 20220830
  16. CARBOPLATIN [Suspect]
     Active Substance: CARBOPLATIN
     Indication: Burkitt^s lymphoma
     Dosage: 2ND LINE SYSTEMIC TREATMENT
     Route: 065
     Dates: start: 20220823, end: 20220830
  17. DEXAMETHASONE [Suspect]
     Active Substance: DEXAMETHASONE
     Indication: Burkitt^s lymphoma
     Dosage: 3RD LINE SYSTEMIC TREATMENT
     Route: 065
     Dates: start: 20220912, end: 20220920
  18. BLINATUMOMAB [Suspect]
     Active Substance: BLINATUMOMAB
     Indication: Burkitt^s lymphoma
     Dosage: 4TH LINE SYSTEMIC TREATMENT
     Route: 065
     Dates: start: 20221004, end: 20221025

REACTIONS (1)
  - Disease progression [Unknown]
